FAERS Safety Report 5619876-5 (Version None)
Quarter: 2008Q1

REPORT INFORMATION
  Report Type: 
  Country: None (occurrence: None)
  Receive Date: 20080208
  Receipt Date: 20070516
  Transmission Date: 20080703
  Serious: Yes (Other)
  Sender: FDA-Public Use
  Company Number: US-ABBOTT-07P-163-0368681-00

PATIENT
  Age: 30 Year
  Sex: Female
  Weight: 65.83 kg

DRUGS (2)
  1. VICODIN [Suspect]
     Indication: COMPLEX REGIONAL PAIN SYNDROME
     Route: 048
  2. MORPHINE SULFATE [Suspect]
     Indication: COMPLEX REGIONAL PAIN SYNDROME
     Route: 048
     Dates: start: 20070501, end: 20070504

REACTIONS (1)
  - URINARY RETENTION [None]
